FAERS Safety Report 4846436-6 (Version None)
Quarter: 2005Q4

REPORT INFORMATION
  Report Type: 
  Country: None (occurrence: None)
  Receive Date: 20051202
  Receipt Date: 20051114
  Transmission Date: 20060501
  Serious: Yes (Other)
  Sender: FDA-Public Use
  Company Number: 007-051114

PATIENT
  Age: 50 Year
  Sex: Female
  Weight: 54.4316 kg

DRUGS (1)
  1. CHLORHEXIDINE GLUCONATE [Suspect]
     Indication: PERIODONTAL DISEASE
     Dosage: 1/2 OZ 2XDAILY, ORAL
     Route: 048
     Dates: start: 20051106, end: 20051108

REACTIONS (5)
  - EAR PAIN [None]
  - GINGIVAL BLISTER [None]
  - ORAL MUCOSAL BLISTERING [None]
  - ORAL PRURITUS [None]
  - PRURITUS [None]
